FAERS Safety Report 7361161-8 (Version None)
Quarter: 2011Q1

REPORT INFORMATION
  Report Type: 
  Country: None (occurrence: None)
  Receive Date: 20110315
  Receipt Date: 20110315
  Transmission Date: 20110831
  Serious: No
  Sender: FDA-Public Use
  Company Number: None

PATIENT
  Sex: Female
  Weight: 56.6996 kg

DRUGS (1)
  1. ULORIC [Suspect]
     Indication: GOUT
     Dosage: 1 EVERY DAY
     Dates: start: 20101206, end: 20110113

REACTIONS (2)
  - RASH [None]
  - OEDEMA PERIPHERAL [None]
